FAERS Safety Report 12759325 (Version 1)
Quarter: 2016Q3

REPORT INFORMATION
  Report Type: Spontaneous
  Country: US (occurrence: US)
  Receive Date: 20160915
  Receipt Date: 20160915
  Transmission Date: 20161109
  Serious: Yes (Hospitalization)
  Sender: FDA-Public Use
  Company Number: None

PATIENT
  Sex: Male
  Weight: 19 kg

DRUGS (1)
  1. NORDITROPIN [Suspect]
     Active Substance: SOMATROPIN
     Indication: MALAISE
     Dosage: 1MG 6 TIMES PER WEEK SUBCUTANEOUSLY
     Route: 058
     Dates: start: 20160204

REACTIONS (1)
  - Asthma [None]
